FAERS Safety Report 16146230 (Version 5)
Quarter: 2020Q1

REPORT INFORMATION
  Report Type: Spontaneous
  Country: US (occurrence: US)
  Receive Date: 20190402
  Receipt Date: 20200330
  Transmission Date: 20200409
  Serious: No
  Sender: FDA-Public Use
  Company Number: US-PFIZER INC-2019130920

PATIENT
  Age: 60 Year
  Sex: Female
  Weight: 81 kg

DRUGS (17)
  1. CALCIUM [Concomitant]
     Active Substance: CALCIUM
     Dosage: UNK
  2. B COMPLEX [VITAMIN B COMPLEX] [Concomitant]
     Dosage: UNK
  3. METHOCARBAMOL. [Concomitant]
     Active Substance: METHOCARBAMOL
     Dosage: UNK
  4. D3 50 [Concomitant]
     Dosage: 50 MG, UNK
  5. OXYCODONE [Concomitant]
     Active Substance: OXYCODONE
     Indication: PAIN
     Dosage: 60 MG, DAILY(OXYCODONE 10MG AND TAKES IT SIX TIMES PER DAY BY MOUTH )
     Route: 048
  6. LYRICA [Suspect]
     Active Substance: PREGABALIN
     Indication: PAIN
     Dosage: 200 MG, 3X/DAY
     Route: 048
  7. LYRICA [Suspect]
     Active Substance: PREGABALIN
     Indication: FIBROMYALGIA
     Dosage: 200 MG, 3X/DAY
     Route: 048
  8. VITAMINS [ASCORBIC ACID;ERGOCALCIFEROL;NICOTINAMIDE;RETINOL;RIBOFLAVIN [Concomitant]
     Dosage: UNK UNK, 1X/DAY(VITAMINS ONCE PER DAY BY MOUTH )
     Route: 048
  9. BIOTIN [Concomitant]
     Active Substance: BIOTIN
     Dosage: 10000 MG, UNK
  10. LYRICA [Suspect]
     Active Substance: PREGABALIN
     Indication: PAIN IN EXTREMITY
     Dosage: 100 MG, 3X/DAY
     Route: 048
  11. LYRICA [Suspect]
     Active Substance: PREGABALIN
     Indication: NEURALGIA
  12. BACLOFEN. [Concomitant]
     Active Substance: BACLOFEN
     Dosage: 10 MG, 3X/DAY(BACLOFEN 10MG ONE TABLET WITH FOOD THREE TIMES PER DAY BY MOUTH )
     Route: 048
  13. MORPHINE [MORPHINE SULFATE] [Concomitant]
     Dosage: UNK
  14. OMEGA 100 [Concomitant]
     Dosage: UNK
  15. LYRICA [Suspect]
     Active Substance: PREGABALIN
     Indication: BACK PAIN
     Dosage: 200 MG, 1X/DAY (1 CAPSULE DAILY ORALLY 90 DAYS)
     Route: 048
  16. DILAUDID [Concomitant]
     Active Substance: HYDROMORPHONE HYDROCHLORIDE
     Dosage: UNK
  17. MAGNESIUM + B6 [Concomitant]
     Dosage: 500 MG, UNK

REACTIONS (10)
  - Pyrexia [Recovered/Resolved]
  - Gastroenteritis viral [Not Recovered/Not Resolved]
  - Off label use [Unknown]
  - Withdrawal syndrome [Recovered/Resolved with Sequelae]
  - Vomiting [Recovered/Resolved]
  - Diarrhoea [Recovered/Resolved]
  - Product use issue [Unknown]
  - Weight decreased [Not Recovered/Not Resolved]
  - Decreased appetite [Recovering/Resolving]
  - Malaise [Recovered/Resolved with Sequelae]

NARRATIVE: CASE EVENT DATE: 201903
